FAERS Safety Report 8722462 (Version 2)
Quarter: 2012Q4

REPORT INFORMATION
  Report Type: 
  Country: DK (occurrence: DK)
  Receive Date: 20120814
  Receipt Date: 20121008
  Transmission Date: 20130627
  Serious: Yes (Hospitalization, Disabling, Other)
  Sender: FDA-Public Use
  Company Number: DK-ELI_LILLY_AND_COMPANY-DK201208002695

PATIENT
  Age: 46 Year
  Sex: Male

DRUGS (1)
  1. CIALIS [Suspect]
     Indication: ERECTILE DYSFUNCTION
     Dosage: 2.5 mg, qd
     Route: 048
     Dates: start: 20120410, end: 20120803

REACTIONS (2)
  - Retinal artery embolism [Not Recovered/Not Resolved]
  - Scotoma [Not Recovered/Not Resolved]
